FAERS Safety Report 6759389-0 (Version None)
Quarter: 2010Q2

REPORT INFORMATION
  Report Type: 
  Country: None (occurrence: None)
  Receive Date: 20100528
  Receipt Date: 20100520
  Transmission Date: 20101027
  Serious: Yes (Hospitalization, Other)
  Sender: FDA-Public Use
  Company Number: AXC-2010-000145

PATIENT
  Age: 60 Year
  Sex: Male

DRUGS (5)
  1. PHOTOFRIN [Suspect]
     Indication: BARRETT'S OESOPHAGUS
     Dosage: , INTRAVENOUS
     Route: 042
     Dates: start: 20090119, end: 20090119
  2. PLAVIX	/01220701/ (CLOPIDOGREL) [Concomitant]
  3. ASPIRIN [Concomitant]
  4. LISINOPRIL [Concomitant]
  5. LIPITOR [Concomitant]

REACTIONS (2)
  - OESOPHAGEAL STENOSIS [None]
  - POST PROCEDURAL HAEMORRHAGE [None]
